FAERS Safety Report 15732044 (Version 4)
Quarter: 2020Q1

REPORT INFORMATION
  Report Type: Spontaneous
  Country: US (occurrence: US)
  Receive Date: 20181217
  Receipt Date: 20200218
  Transmission Date: 20200409
  Serious: Yes (Other)
  Sender: FDA-Public Use
  Company Number: US-GILEAD-2018-0379783

PATIENT
  Age: 61 Year
  Sex: Female
  Weight: 61.22 kg

DRUGS (1)
  1. HARVONI [Suspect]
     Active Substance: LEDIPASVIR\SOFOSBUVIR
     Indication: HEPATITIS C
     Dosage: 1 DOSAGE FORM
     Route: 048
     Dates: start: 2018, end: 2018

REACTIONS (4)
  - Herpes simplex [Not Recovered/Not Resolved]
  - Herpes simplex [Recovered/Resolved]
  - Pemphigus [Not Recovered/Not Resolved]
  - Herpes simplex pharyngitis [Recovered/Resolved]

NARRATIVE: CASE EVENT DATE: 20181115
